FAERS Safety Report 9820206 (Version 1)
Quarter: 2013Q4

REPORT INFORMATION
  Report Type: Spontaneous
  Country: TR (occurrence: None)
  Receive Date: 20131024
  Receipt Date: 20131024
  Transmission Date: 20140711
  Serious: Yes (Other)
  Sender: FDA-Public Use
  Company Number: 2013-01595

PATIENT
  Age: 32 Year
  Sex: Male

DRUGS (2)
  1. QUETIAPINE (IMMEDIATE RELEASE) [Suspect]
     Indication: DEPRESSION
  2. QUETIAPINE (IMMEDIATE RELEASE) [Suspect]
     Indication: AGGRESSION

REACTIONS (1)
  - Acute generalised exanthematous pustulosis [None]
